FAERS Safety Report 4960622-6 (Version None)
Quarter: 2006Q2

REPORT INFORMATION
  Report Type: 
  Country: None (occurrence: None)
  Receive Date: 20060403
  Receipt Date: 20051025
  Transmission Date: 20061013
  Serious: Yes (Death, Hospitalization, Other)
  Sender: FDA-Public Use
  Company Number: US-MERCK-0510USA09167

PATIENT
  Age: 65 Year
  Sex: Female
  Weight: 111 kg

DRUGS (4)
  1. VIOXX [Suspect]
     Indication: SWELLING
     Route: 048
     Dates: start: 19991001, end: 20021101
  2. VIOXX [Suspect]
     Route: 048
     Dates: start: 19991001, end: 20021101
  3. VIOXX [Suspect]
     Indication: PAIN
     Route: 048
     Dates: start: 19991001, end: 20021101
  4. VIOXX [Suspect]
     Route: 048
     Dates: start: 19991001, end: 20021101

REACTIONS (4)
  - BLOOD GLUCOSE DECREASED [None]
  - CARDIAC DISORDER [None]
  - DEATH [None]
  - MYOCARDIAL INFARCTION [None]
